FAERS Safety Report 7436241-9 (Version None)
Quarter: 2011Q2

REPORT INFORMATION
  Report Type: 
  Country: None (occurrence: None)
  Receive Date: 20110425
  Receipt Date: 20110411
  Transmission Date: 20111010
  Serious: Yes (Disabling, Other)
  Sender: FDA-Public Use
  Company Number: US-BAYER-2011-031584

PATIENT
  Sex: Male

DRUGS (5)
  1. AVELOX [Suspect]
     Indication: SINUSITIS
  2. PROTONIX [Concomitant]
  3. AVELOX [Suspect]
     Indication: UPPER RESPIRATORY TRACT INFECTION
     Dosage: 400 MG, QD
     Route: 048
     Dates: start: 20101101
  4. LIPITOR [Concomitant]
  5. LUMIGAN [Concomitant]

REACTIONS (2)
  - DYSGRAPHIA [None]
  - TREMOR [None]
